FAERS Safety Report 25960831 (Version 2)
Quarter: 2025Q4

REPORT INFORMATION
  Report Type: Spontaneous
  Country: JP (occurrence: JP)
  Receive Date: 20251027
  Receipt Date: 20251117
  Transmission Date: 20260118
  Serious: Yes (Other)
  Sender: JOHNSON AND JOHNSON
  Company Number: JP-JNJFOC-20250913549

PATIENT
  Age: 75 Year
  Sex: Male

DRUGS (6)
  1. RYBREVANT [Suspect]
     Active Substance: AMIVANTAMAB-VMJW
     Indication: EGFR gene mutation
     Dosage: DOSE UNKNOWN,DAY1
     Route: 041
     Dates: start: 20250827, end: 20250827
  2. RYBREVANT [Suspect]
     Active Substance: AMIVANTAMAB-VMJW
     Dosage: DOSE UNKNOWN,DAY2
     Route: 041
     Dates: start: 20250828, end: 20250828
  3. RYBREVANT [Suspect]
     Active Substance: AMIVANTAMAB-VMJW
     Dosage: DOSE UNKNOWN,DOSE REDUCTION
     Route: 041
     Dates: start: 2025
  4. CARBOPLATIN [Suspect]
     Active Substance: CARBOPLATIN
     Indication: EGFR gene mutation
     Dosage: DOSE UNKNOWN
     Route: 041
     Dates: start: 20250827
  5. CARBOPLATIN [Suspect]
     Active Substance: CARBOPLATIN
     Dosage: DOSE UNKNOWN
     Route: 041
  6. PEMETREXED [Suspect]
     Active Substance: PEMETREXED
     Indication: EGFR gene mutation
     Dosage: DOSE UNKNOWN
     Route: 041
     Dates: start: 20250827

REACTIONS (3)
  - Deep vein thrombosis [Recovered/Resolved]
  - Febrile neutropenia [Recovered/Resolved]
  - Infusion related reaction [Recovered/Resolved]

NARRATIVE: CASE EVENT DATE: 20250101
